FAERS Safety Report 9444393 (Version 1)
Quarter: 2013Q3

REPORT INFORMATION
  Report Type: Spontaneous
  Country: US (occurrence: US)
  Receive Date: 20130807
  Receipt Date: 20130807
  Transmission Date: 20140515
  Serious: No
  Sender: FDA-Public Use
  Company Number: US-009507513-1308USA000087

PATIENT
  Sex: Female

DRUGS (1)
  1. ZETIA [Suspect]
     Dosage: UNK
     Route: 048

REACTIONS (4)
  - Mobility decreased [Unknown]
  - Feeling of body temperature change [Unknown]
  - Dizziness [Unknown]
  - Asthenia [Unknown]
